FAERS Safety Report 4685439-1 (Version None)
Quarter: 2005Q2

REPORT INFORMATION
  Report Type: 
  Country: None (occurrence: None)
  Receive Date: 20050603
  Receipt Date: 20050519
  Transmission Date: 20051028
  Serious: Yes (Other)
  Sender: FDA-Public Use
  Company Number: 213260

PATIENT
  Age: 53 Year
  Sex: Female

DRUGS (4)
  1. AVASTIN [Suspect]
     Indication: COLORECTAL CANCER METASTATIC
     Dosage: 350 MG, INTRAVENOUS
     Route: 042
  2. IRONOTECAN (IRONOTECAN HYDROCHLORIDE) [Concomitant]
  3. FLUOROURACIL [Concomitant]
  4. FOLIC ACID [Concomitant]

REACTIONS (5)
  - CATHETER RELATED COMPLICATION [None]
  - COLORECTAL CANCER METASTATIC [None]
  - DEVICE FAILURE [None]
  - INJECTION SITE EXTRAVASATION [None]
  - MALIGNANT NEOPLASM PROGRESSION [None]
